FAERS Safety Report 13786656 (Version 3)
Quarter: 2017Q3

REPORT INFORMATION
  Report Type: Spontaneous
  Country: BR (occurrence: BR)
  Receive Date: 20170725
  Receipt Date: 20170911
  Transmission Date: 20171127
  Serious: Yes (Other)
  Sender: FDA-Public Use
  Company Number: BR-ROCHE-1966039

PATIENT
  Age: 42 Year
  Sex: Male

DRUGS (1)
  1. ERIVEDGE [Suspect]
     Active Substance: VISMODEGIB
     Indication: BASAL CELL CARCINOMA
     Route: 048
     Dates: start: 201406

REACTIONS (8)
  - Fatigue [Unknown]
  - Dysgeusia [Unknown]
  - Abdominal discomfort [Unknown]
  - Alopecia [Unknown]
  - Pulmonary mass [Unknown]
  - Musculoskeletal pain [Recovered/Resolved]
  - Appetite disorder [Unknown]
  - Headache [Unknown]

NARRATIVE: CASE EVENT DATE: 201509
